FAERS Safety Report 8346622-7 (Version None)
Quarter: 2012Q2

REPORT INFORMATION
  Report Type: 
  Country: None (occurrence: None)
  Receive Date: 20120509
  Receipt Date: 20120504
  Transmission Date: 20120825
  Serious: Yes (Hospitalization)
  Sender: FDA-Public Use
  Company Number: PHEH2012US003064

PATIENT
  Sex: Female

DRUGS (3)
  1. EXTAVIA [Suspect]
     Dosage: 1.0 ML, QOD
     Route: 058
  2. EXTAVIA [Suspect]
     Indication: MULTIPLE SCLEROSIS
     Dosage: 0.25 ML, QOD
     Route: 058
     Dates: start: 20120124
  3. EXTAVIA [Suspect]
     Dosage: 0.75 ML, QOD
     Route: 058

REACTIONS (17)
  - ABDOMINAL DISCOMFORT [None]
  - DYSPNOEA [None]
  - INCORRECT DOSE ADMINISTERED [None]
  - DIZZINESS [None]
  - LIMB DISCOMFORT [None]
  - PARAESTHESIA [None]
  - TREMOR [None]
  - INJECTION SITE ERYTHEMA [None]
  - MIGRAINE [None]
  - HEART RATE INCREASED [None]
  - CHILLS [None]
  - OEDEMA PERIPHERAL [None]
  - THROMBOSIS [None]
  - INFLUENZA LIKE ILLNESS [None]
  - PAIN [None]
  - HEADACHE [None]
  - INJECTION SITE HAEMATOMA [None]
